FAERS Safety Report 24120137 (Version 2)
Quarter: 2024Q3

REPORT INFORMATION
  Report Type: Spontaneous
  Country: JP (occurrence: US)
  Receive Date: 20240722
  Receipt Date: 20240725
  Transmission Date: 20241017
  Serious: No
  Sender: ROCHE
  Company Number: US-ROCHE-10000027642

PATIENT
  Age: 6 Decade
  Sex: Female
  Weight: 79 kg

DRUGS (9)
  1. ATEZOLIZUMAB [Suspect]
     Active Substance: ATEZOLIZUMAB
     Indication: Lung adenocarcinoma
     Route: 042
  2. ANAMORELIN [Concomitant]
     Active Substance: ANAMORELIN
  3. ROSUVASTATIN [Concomitant]
     Active Substance: ROSUVASTATIN
  4. VONOPRAZAN [Concomitant]
     Active Substance: VONOPRAZAN
  5. MIROGABALIN [Concomitant]
     Active Substance: MIROGABALIN
  6. CALCIUM CARBONATE\CHOLECALCIFEROL\MAGNESIUM CARBONATE [Concomitant]
     Active Substance: CALCIUM CARBONATE\CHOLECALCIFEROL\MAGNESIUM CARBONATE
  7. ATENOLOL [Concomitant]
     Active Substance: ATENOLOL
  8. PREDNISOLONE [Concomitant]
     Active Substance: PREDNISOLONE
  9. HYDROCORTISONE [Concomitant]
     Active Substance: HYDROCORTISONE\HYDROCORTISONE ACETATE

REACTIONS (1)
  - Diarrhoea [Unknown]
